FAERS Safety Report 5510475-2 (Version None)
Quarter: 2007Q4

REPORT INFORMATION
  Report Type: 
  Country: None (occurrence: None)
  Receive Date: 20071108
  Receipt Date: 20071101
  Transmission Date: 20080405
  Serious: Yes (Hospitalization, Other)
  Sender: FDA-Public Use
  Company Number: US-PURDUE-USA_2007_0028537

PATIENT
  Sex: Female

DRUGS (5)
  1. OXYCONTIN [Suspect]
     Indication: PAIN
     Dosage: 40 MG, BID
     Route: 048
     Dates: start: 20010101
  2. OXYCONTIN [Suspect]
     Dosage: 20 MG, BID
     Route: 048
  3. OXYIR [Suspect]
     Indication: PAIN
     Dosage: UNK MG, SEE TEXT
     Route: 048
     Dates: start: 20010101
  4. FENTANYL [Concomitant]
     Indication: PAIN
     Dosage: UNK, UNK
  5. OXYCONTIN [Suspect]
     Indication: DRUG USE FOR UNKNOWN INDICATION
     Route: 048
     Dates: start: 20010101

REACTIONS (15)
  - ANXIETY [None]
  - DEHYDRATION [None]
  - DEPRESSION [None]
  - DIARRHOEA [None]
  - ELECTROCARDIOGRAM ABNORMAL [None]
  - FATIGUE [None]
  - HEART RATE IRREGULAR [None]
  - HOSPITALISATION [None]
  - HYPERHIDROSIS [None]
  - HYPOKALAEMIA [None]
  - INFARCTION [None]
  - MEMORY IMPAIRMENT [None]
  - PAIN [None]
  - POLLAKIURIA [None]
  - SOMNOLENCE [None]
